FAERS Safety Report 12747809 (Version 3)
Quarter: 2020Q4

REPORT INFORMATION
  Report Type: Spontaneous
  Country: US (occurrence: US)
  Receive Date: 20160915
  Receipt Date: 20201027
  Transmission Date: 20210113
  Serious: No
  Sender: FDA-Public Use
  Company Number: US-JAZZ-2016-US-010056

PATIENT
  Sex: Female

DRUGS (27)
  1. MS CONTIN [Concomitant]
     Active Substance: MORPHINE SULFATE
  2. NABUMETONE. [Concomitant]
     Active Substance: NABUMETONE
  3. OMEPRAZOLE. [Concomitant]
     Active Substance: OMEPRAZOLE
  4. VALIUM [Concomitant]
     Active Substance: DIAZEPAM
  5. DOXEPIN [DOXEPIN HYDROCHLORIDE] [Concomitant]
     Active Substance: DOXEPIN HYDROCHLORIDE
  6. OXYCODONE AND ACETAMINOPHEN [Concomitant]
     Active Substance: ACETAMINOPHEN\OXYCODONE HYDROCHLORIDE
  7. PERCOCET [Concomitant]
     Active Substance: ACETAMINOPHEN\OXYCODONE HYDROCHLORIDE
  8. LEXAPRO [Concomitant]
     Active Substance: ESCITALOPRAM OXALATE
  9. TOPAMAX [Concomitant]
     Active Substance: TOPIRAMATE
  10. PROVIGIL [Concomitant]
     Active Substance: MODAFINIL
  11. SULFASALAZINE. [Concomitant]
     Active Substance: SULFASALAZINE
  12. XANAX [Concomitant]
     Active Substance: ALPRAZOLAM
  13. LIDOCAINE [LIDOCAINE HYDROCHLORIDE] [Concomitant]
     Active Substance: LIDOCAINE HYDROCHLORIDE
  14. XYREM [Suspect]
     Active Substance: SODIUM OXYBATE
     Indication: CATAPLEXY
     Dosage: 4.5 G, BID
     Route: 048
     Dates: start: 201410
  15. BISOPROLOL FUMARATE AND HYDROCHLOROTHIAZIDE [Concomitant]
     Active Substance: BISOPROLOL FUMARATE\HYDROCHLOROTHIAZIDE
  16. WELLBUTRIN [Concomitant]
     Active Substance: BUPROPION HYDROCHLORIDE
  17. LYRICA [Concomitant]
     Active Substance: PREGABALIN
  18. XYREM [Suspect]
     Active Substance: SODIUM OXYBATE
     Indication: NARCOLEPSY
     Dosage: DOSE ADJUSTMENTS
     Route: 048
  19. TOPIRAMATE. [Concomitant]
     Active Substance: TOPIRAMATE
  20. XYREM [Suspect]
     Active Substance: SODIUM OXYBATE
     Indication: SOMNOLENCE
     Dosage: 2.25 G, BID
     Route: 048
     Dates: start: 201408, end: 201408
  21. ABILIFY [Concomitant]
     Active Substance: ARIPIPRAZOLE
  22. VOLTAREN [Concomitant]
     Active Substance: DICLOFENAC SODIUM
  23. PHENERGAN [Concomitant]
     Active Substance: PROMETHAZINE HYDROCHLORIDE
  24. DIAZEPAM. [Concomitant]
     Active Substance: DIAZEPAM
  25. PREVACID [Concomitant]
     Active Substance: LANSOPRAZOLE
  26. OPANA [Concomitant]
     Active Substance: OXYMORPHONE HYDROCHLORIDE
  27. TRAZODONE HYDROCHLORIDE. [Concomitant]
     Active Substance: TRAZODONE HYDROCHLORIDE

REACTIONS (1)
  - Blood pressure increased [Recovering/Resolving]
